FAERS Safety Report 24396245 (Version 5)
Quarter: 2025Q2

REPORT INFORMATION
  Report Type: Spontaneous
  Country: US (occurrence: US)
  Receive Date: 20241004
  Receipt Date: 20250505
  Transmission Date: 20250716
  Serious: No
  Sender: PFIZER
  Company Number: US-PFIZER INC-202400262071

PATIENT
  Age: 11 Year
  Sex: Male

DRUGS (3)
  1. GENOTROPIN [Suspect]
     Active Substance: SOMATROPIN
     Indication: Growth disorder
     Dosage: 1.2 MG, NIGHTLY
     Dates: start: 202305
  2. GENOTROPIN [Suspect]
     Active Substance: SOMATROPIN
     Dosage: 1 MG, ALTERNATE DAY (ALTERNATE 1 AND 1.2.MG DAILY)
  3. GENOTROPIN [Suspect]
     Active Substance: SOMATROPIN
     Dosage: 1.2 MG, ALTERNATE DAY (ALTERNATE 1 AND 1.2.MG DAILY)

REACTIONS (1)
  - Device information output issue [Unknown]

NARRATIVE: CASE EVENT DATE: 20240923
